FAERS Safety Report 5765227-5 (Version None)
Quarter: 2008Q2

REPORT INFORMATION
  Report Type: 
  Country: None (occurrence: None)
  Receive Date: 20080609
  Receipt Date: 20080609
  Transmission Date: 20081010
  Serious: No
  Sender: FDA-Public Use
  Company Number: None

PATIENT
  Age: 43 Year
  Sex: Female
  Weight: 90.7194 kg

DRUGS (1)
  1. LAMICTAL [Suspect]
     Indication: AFFECTIVE DISORDER
     Dates: start: 19990101, end: 20080606

REACTIONS (4)
  - ABASIA [None]
  - FATIGUE [None]
  - IMPAIRED DRIVING ABILITY [None]
  - MOVEMENT DISORDER [None]
